FAERS Safety Report 8873541 (Version 1)
Quarter: 2012Q4

REPORT INFORMATION
  Report Type: 
  Country: US (occurrence: US)
  Receive Date: 20121030
  Receipt Date: 20121030
  Transmission Date: 20130627
  Serious: No
  Sender: FDA-Public Use
  Company Number: US-VERTEX PHARMACEUTICAL INC.-2012-023544

PATIENT
  Age: 39 Year
  Sex: Female
  Weight: 52 kg

DRUGS (3)
  1. VX-950 [Suspect]
     Indication: HEPATITIS C
     Dosage: 750 mg, tid
     Route: 048
     Dates: start: 20120930
  2. RIBAVIRIN [Concomitant]
     Indication: HEPATITIS C
     Dosage: 3 pills AM, 2 pills PM
     Route: 048
     Dates: start: 20120930
  3. PEGINTERFERON [Concomitant]
     Indication: HEPATITIS C
     Dosage: UNK, once a week
     Route: 058
     Dates: start: 20120929

REACTIONS (4)
  - Decreased activity [Not Recovered/Not Resolved]
  - Fatigue [Not Recovered/Not Resolved]
  - Rash [Not Recovered/Not Resolved]
  - Vomiting [Not Recovered/Not Resolved]
